FAERS Safety Report 9320805 (Version 2)
Quarter: 2013Q2

REPORT INFORMATION
  Report Type: Spontaneous
  Country: US (occurrence: US)
  Receive Date: 20130531
  Receipt Date: 20130628
  Transmission Date: 20140414
  Serious: Yes (Other)
  Sender: FDA-Public Use
  Company Number: US-AMGEN-USASP2013038044

PATIENT
  Age: 49 Year
  Sex: Female

DRUGS (2)
  1. PROLIA [Suspect]
     Indication: OSTEOPOROSIS
     Dosage: UNK
     Dates: start: 2011
  2. CALCIUM + VIT D [Concomitant]

REACTIONS (3)
  - Systemic lupus erythematosus [Recovered/Resolved]
  - Oedema peripheral [Recovered/Resolved]
  - Oedema [Unknown]
